FAERS Safety Report 8082460-0 (Version None)
Quarter: 2012Q1

REPORT INFORMATION
  Report Type: 
  Country: None (occurrence: None)
  Receive Date: 20120127
  Receipt Date: 20110220
  Transmission Date: 20120608
  Serious: No
  Sender: FDA-Public Use
  Company Number: US-ABBOTT-11P-163-0706462-00

PATIENT
  Age: 65 Year
  Sex: Female

DRUGS (6)
  1. VICOPROFEN [Concomitant]
     Indication: PAIN
  2. EFFEXOR XR [Concomitant]
     Indication: ANTIDEPRESSANT THERAPY
  3. LABETALOL HCL [Concomitant]
     Indication: BLOOD PRESSURE
  4. AMBIEN [Concomitant]
     Indication: PRODUCT USED FOR UNKNOWN INDICATION
  5. KLONOPIN [Concomitant]
     Indication: PRODUCT USED FOR UNKNOWN INDICATION
  6. HUMIRA [Suspect]
     Indication: RHEUMATOID ARTHRITIS
     Dates: start: 20110201

REACTIONS (4)
  - PAIN [None]
  - INFECTION [None]
  - ERYTHEMA [None]
  - WOUND [None]
